FAERS Safety Report 16705918 (Version 1)
Quarter: 2019Q3

REPORT INFORMATION
  Report Type: Spontaneous
  Country: GB (occurrence: GB)
  Receive Date: 20190815
  Receipt Date: 20190815
  Transmission Date: 20191004
  Serious: Yes (Life-Threatening)
  Sender: FDA-Public Use
  Company Number: GB-BIO PRODUCTS LABORATORY LTD-2073184

PATIENT
  Age: 75 Year
  Sex: Male

DRUGS (10)
  1. FOLIC ACID. [Concomitant]
     Active Substance: FOLIC ACID
  2. DALTEPARIN [Concomitant]
     Active Substance: DALTEPARIN
  3. RISEDRONIC ACID [Concomitant]
     Active Substance: RISEDRONIC ACID
  4. ADCAL-D3 [Concomitant]
     Active Substance: CALCIUM CARBONATE\CHOLECALCIFEROL
  5. MYCOPHENOLIC ACID. [Concomitant]
     Active Substance: MYCOPHENOLIC ACID
  6. PANTOPRAZOLE [Concomitant]
     Active Substance: PANTOPRAZOLE
  7. PREDNISOLONE. [Concomitant]
     Active Substance: PREDNISOLONE
  8. RAMIPRIL. [Concomitant]
     Active Substance: RAMIPRIL
  9. PYRIDOSTIGMINE [Concomitant]
     Active Substance: PYRIDOSTIGMINE
  10. GENERIC IVIG [Suspect]
     Active Substance: HUMAN IMMUNOGLOBULIN G
     Indication: MYASTHENIA GRAVIS
     Route: 042
     Dates: start: 20190719, end: 20190723

REACTIONS (1)
  - Pulmonary embolism [Not Recovered/Not Resolved]
